FAERS Safety Report 15400323 (Version 3)
Quarter: 2018Q4

REPORT INFORMATION
  Report Type: Spontaneous
  Country: US (occurrence: US)
  Receive Date: 20180919
  Receipt Date: 20181205
  Transmission Date: 20190204
  Serious: Yes (Hospitalization)
  Sender: FDA-Public Use
  Company Number: US-ROCHE-2185773

PATIENT
  Age: 52 Year
  Sex: Male

DRUGS (1)
  1. ESBRIET [Suspect]
     Active Substance: PIRFENIDONE
     Indication: IDIOPATHIC PULMONARY FIBROSIS
     Dosage: 3 PILLS
     Route: 048
     Dates: start: 20160101, end: 201810

REACTIONS (2)
  - Blood potassium increased [Unknown]
  - Infection [Recovering/Resolving]

NARRATIVE: CASE EVENT DATE: 20180914
